FAERS Safety Report 6071484-0 (Version None)
Quarter: 2009Q1

REPORT INFORMATION
  Report Type: 
  Country: None (occurrence: None)
  Receive Date: 20090206
  Receipt Date: 20090206
  Transmission Date: 20090719
  Serious: Yes (Other)
  Sender: FDA-Public Use
  Company Number: None

PATIENT
  Age: 67 Year
  Sex: Female
  Weight: 74.3899 kg

DRUGS (1)
  1. COREG [Suspect]
     Indication: CARDIAC FAILURE CONGESTIVE
     Dosage: 25MG BID PO
     Route: 048
     Dates: start: 20071005, end: 20071201

REACTIONS (6)
  - BLOOD PRESSURE INCREASED [None]
  - CARDIAC FAILURE CONGESTIVE [None]
  - CONDITION AGGRAVATED [None]
  - LIVER FUNCTION TEST ABNORMAL [None]
  - PLEURAL EFFUSION [None]
  - THERAPEUTIC RESPONSE UNEXPECTED WITH DRUG SUBSTITUTION [None]
